FAERS Safety Report 4963650-X (Version None)
Quarter: 2006Q1

REPORT INFORMATION
  Report Type: 
  Country: None (occurrence: None)
  Receive Date: 20060201
  Receipt Date: 20051104
  Transmission Date: 20060701
  Serious: No
  Sender: FDA-Public Use
  Company Number: 2005PV004683

PATIENT
  Age: 66 Year
  Sex: Male
  Weight: 104.3273 kg

DRUGS (19)
  1. BYETTA [Suspect]
     Indication: DIABETES MELLITUS NON-INSULIN-DEPENDENT
     Dosage: 5 MCG; BID; SC
     Route: 058
     Dates: start: 20050907
  2. AMARYL [Concomitant]
  3. TOPROL-XL [Concomitant]
  4. FOLIC ACID [Concomitant]
  5. ASPIRIN [Concomitant]
  6. LISINOPRIL [Concomitant]
  7. HYDROCHLOROTHIAZIDE [Concomitant]
  8. KLOR-CON [Concomitant]
  9. TRICOR [Concomitant]
  10. LIPITOR [Concomitant]
  11. DILTAZEM ER [Concomitant]
  12. ONE A DAY [Concomitant]
  13. VITAMIN E [Concomitant]
  14. ASCORBIC ACID [Concomitant]
  15. ZINC [Concomitant]
  16. NIACIN [Concomitant]
  17. FISH OIL [Concomitant]
  18. NEURONTIN [Concomitant]
  19. TEMAZEPAM [Concomitant]

REACTIONS (4)
  - BLOOD GLUCOSE DECREASED [None]
  - DIARRHOEA [None]
  - HYPERHIDROSIS [None]
  - SOMNOLENCE [None]
